FAERS Safety Report 11143542 (Version 1)
Quarter: 2015Q2

REPORT INFORMATION
  Report Type: Spontaneous
  Country: US (occurrence: US)
  Receive Date: 20150528
  Receipt Date: 20150528
  Transmission Date: 20150821
  Serious: No
  Sender: FDA-Public Use
  Company Number: US-009507513-1505USA014340

PATIENT
  Age: 79 Year
  Sex: Male

DRUGS (1)
  1. PRIMAXIN IM [Suspect]
     Active Substance: CILASTATIN SODIUM\IMIPENEM
     Indication: PANCREATITIS BACTERIAL

REACTIONS (1)
  - Drug ineffective [Unknown]
